FAERS Safety Report 4738420-8 (Version None)
Quarter: 2005Q3

REPORT INFORMATION
  Report Type: 
  Country: None (occurrence: None)
  Receive Date: 20050803
  Receipt Date: 20050721
  Transmission Date: 20060218
  Serious: Yes (Hospitalization, Other)
  Sender: FDA-Public Use
  Company Number: 2005092715

PATIENT
  Age: 43 Year
  Sex: Male

DRUGS (3)
  1. VIAGRA [Suspect]
     Indication: ERECTILE DYSFUNCTION
     Dosage: 25 MG (25 MG AS NECESSARY) ORAL
     Route: 048
     Dates: start: 20000101
  2. STABLON (TIANEPTINE) [Concomitant]
  3. NEOZINE (LEVOPROMAZINE) [Concomitant]

REACTIONS (4)
  - DEPRESSION [None]
  - DRUG INEFFECTIVE [None]
  - INSOMNIA [None]
  - TESTIS CANCER [None]
